FAERS Safety Report 7027748-7 (Version None)
Quarter: 2010Q4

REPORT INFORMATION
  Report Type: 
  Country: None (occurrence: None)
  Receive Date: 20101004
  Receipt Date: 20100921
  Transmission Date: 20110411
  Serious: Yes (Other)
  Sender: FDA-Public Use
  Company Number: FR-ELI_LILLY_AND_COMPANY-FR201005002824

PATIENT
  Age: 81 Year
  Sex: Female
  Weight: 62 kg

DRUGS (5)
  1. FORTEO [Suspect]
     Indication: OSTEOPOROSIS
     Dosage: 20 UG, DAILY (1/D)
     Route: 058
     Dates: start: 20090618, end: 20100330
  2. RIVOTRIL [Concomitant]
     Indication: DEPRESSION
     Dosage: 6 DROPS, DAILY (1/D)
     Route: 048
     Dates: start: 20080101
  3. TEMERIT [Concomitant]
     Indication: HYPERTENSION
     Dosage: 1TAB, DAILY (1/D)
     Route: 048
  4. NEXIUM [Concomitant]
     Indication: ABDOMINAL PAIN UPPER
     Dosage: 1TAB, DAILY (1/D)
  5. ACETAMINOPHEN W/ PROPOXYPHENE HCL [Concomitant]
     Indication: ARTHRALGIA
     Dosage: 3TAB, DAILY (1/D)

REACTIONS (1)
  - RENAL FAILURE [None]
